FAERS Safety Report 8917581 (Version 2)
Quarter: 2013Q1

REPORT INFORMATION
  Report Type: Report from Study
  Country: JP (occurrence: JP)
  Receive Date: 20121120
  Receipt Date: 20130104
  Transmission Date: 20140127
  Serious: Yes (Death)
  Sender: FDA-Public Use
  Company Number: JP-SANOFI-AVENTIS-2012SA084782

PATIENT
  Age: 65 Year
  Sex: Male
  Weight: 54.6 kg

DRUGS (7)
  1. LANTUS SOLOSTAR [Suspect]
     Indication: TYPE 2 DIABETES MELLITUS
     Dosage: DOSE:10 UNIT(S)
     Route: 058
     Dates: start: 20120907, end: 20121015
  2. SOLOSTAR [Suspect]
     Indication: DEVICE THERAPY
     Dates: start: 20120907, end: 20121015
  3. ALOGLIPTIN BENZOATE [Concomitant]
     Indication: TYPE 2 DIABETES MELLITUS
     Route: 048
  4. VOGLIBOSE [Concomitant]
     Indication: TYPE 2 DIABETES MELLITUS
     Route: 048
  5. ADALAT CR [Concomitant]
     Indication: PERIPHERAL ARTERIAL OCCLUSIVE DISEASE
  6. AMPICILLIN SODIUM/SULBACTAM SODIUM [Concomitant]
     Indication: PERIPHERAL ARTERIAL OCCLUSIVE DISEASE
     Route: 042
     Dates: start: 20120922, end: 20120927
  7. CILASTATIN/IMIPENEM [Concomitant]
     Indication: PERIPHERAL ARTERIAL OCCLUSIVE DISEASE
     Route: 042
     Dates: start: 20120909, end: 20120921

REACTIONS (1)
  - Liver disorder [Fatal]
